FAERS Safety Report 23474338 (Version 1)
Quarter: 2024Q1

REPORT INFORMATION
  Report Type: Report from Study
  Country: US (occurrence: US)
  Receive Date: 20240204
  Receipt Date: 20240204
  Transmission Date: 20240409
  Serious: Yes (Other)
  Sender: FDA-Public Use
  Company Number: US-EXELIXIS-CABO-23062048

PATIENT
  Age: 60 Year
  Sex: Male

DRUGS (13)
  1. CABOMETYX [Suspect]
     Active Substance: CABOZANTINIB S-MALATE
     Indication: Colon cancer
     Dosage: 30 MG, QD (30 MG BY CUTTING 60 MG)
     Dates: start: 20230311
  2. CABOMETYX [Suspect]
     Active Substance: CABOZANTINIB S-MALATE
     Dosage: 40 MG, QD
     Dates: start: 20230328
  3. TEPMETKO [Suspect]
     Active Substance: TEPOTINIB HYDROCHLORIDE
     Indication: Colon cancer
     Dosage: 450 MG, QD
     Dates: start: 20230309
  4. LENVIMA [Concomitant]
     Active Substance: LENVATINIB
  5. ANASTROZOLE [Concomitant]
     Active Substance: ANASTROZOLE
  6. CAPECITABINE [Concomitant]
     Active Substance: CAPECITABINE
  7. CELEBREX [Concomitant]
     Active Substance: CELECOXIB
  8. IVERMECTIN [Concomitant]
     Active Substance: IVERMECTIN
  9. NALTREXONE [Concomitant]
     Active Substance: NALTREXONE
  10. MAGNESIUM [Concomitant]
     Active Substance: MAGNESIUM
  11. TABRECTA [Concomitant]
     Active Substance: CAPMATINIB
  12. VITAMIN D NOS [Concomitant]
     Active Substance: VITAMIN D NOS
  13. NERLYNX [Concomitant]
     Active Substance: NERATINIB

REACTIONS (10)
  - Malignant neoplasm progression [Unknown]
  - Increased tendency to bruise [Recovered/Resolved]
  - Diarrhoea [Recovered/Resolved]
  - Blood pressure increased [Not Recovered/Not Resolved]
  - Dry skin [Unknown]
  - Taste disorder [Unknown]
  - Nausea [Unknown]
  - Bone lesion [Unknown]
  - Wrong technique in product usage process [Unknown]
  - Off label use [Unknown]

NARRATIVE: CASE EVENT DATE: 20230301
